FAERS Safety Report 9172975 (Version 1)
Quarter: 2013Q1

REPORT INFORMATION
  Report Type: Spontaneous
  Country: US (occurrence: None)
  Receive Date: 20130319
  Receipt Date: 20130319
  Transmission Date: 20140127
  Serious: Yes (Death, Other)
  Sender: FDA-Public Use
  Company Number: None

PATIENT
  Age: 40 Year
  Sex: Female

DRUGS (9)
  1. QSYMIA 3.75MG/23MG [Suspect]
  2. CARAFATE [Concomitant]
  3. PROTONIX [Concomitant]
  4. PROPRANOLOL [Concomitant]
  5. XANAX [Concomitant]
  6. CYANOCOBALAMIN [Concomitant]
  7. MVI [Concomitant]
  8. CALCIUM [Concomitant]
  9. ACARBOSE [Concomitant]

REACTIONS (1)
  - Abdominal pain [None]
